FAERS Safety Report 25840706 (Version 1)
Quarter: 2025Q3

REPORT INFORMATION
  Report Type: Other
  Country: EU (occurrence: EU)
  Receive Date: 20250924
  Receipt Date: 20250924
  Transmission Date: 20251021
  Serious: Yes (Other)
  Sender: ZYDUS PHARM
  Company Number: None

PATIENT

DRUGS (5)
  1. PAROXETINE [Suspect]
     Active Substance: PAROXETINE
     Indication: Depression
     Route: 048
     Dates: start: 2020, end: 20221101
  2. PAROXETINE [Suspect]
     Active Substance: PAROXETINE
     Route: 048
     Dates: start: 20221101, end: 20250501
  3. PAROXETINE [Suspect]
     Active Substance: PAROXETINE
     Route: 048
     Dates: start: 20250501, end: 20250801
  4. OMEPRAZOLE [Concomitant]
     Active Substance: OMEPRAZOLE
     Indication: Product used for unknown indication
     Route: 048
  5. OXAZEPAM [Concomitant]
     Active Substance: OXAZEPAM
     Indication: Anxiety
     Route: 048

REACTIONS (3)
  - Condition aggravated [Recovering/Resolving]
  - Anaemia [Recovered/Resolved]
  - Thrombocytopenia [Not Recovered/Not Resolved]

NARRATIVE: CASE EVENT DATE: 20250501
